FAERS Safety Report 21932695 (Version 1)
Quarter: 2023Q1

REPORT INFORMATION
  Report Type: Spontaneous
  Country: CN (occurrence: CN)
  Receive Date: 20230131
  Receipt Date: 20230131
  Transmission Date: 20230417
  Serious: No
  Sender: FDA-Public Use
  Company Number: CN-PFIZER INC-PV202300018196

PATIENT
  Age: 62 Year
  Sex: Male
  Weight: 65 kg

DRUGS (3)
  1. NIRMATRELVIR\RITONAVIR [Suspect]
     Active Substance: NIRMATRELVIR\RITONAVIR
     Indication: COVID-19 treatment
     Dosage: 3 DF, 2X/DAY
     Route: 048
     Dates: start: 20221228, end: 20230104
  2. ANDROGRAPHOLIDE [Concomitant]
     Active Substance: ANDROGRAPHOLIDE
     Indication: Pneumonia
     Dosage: 15 ML, 1X/DAY
     Route: 041
     Dates: start: 20221228, end: 20230101
  3. CEFTIZOXIME SODIUM [Concomitant]
     Active Substance: CEFTIZOXIME SODIUM
     Indication: Pneumonia
     Dosage: 1 G, 2X/DAY
     Route: 041
     Dates: start: 20221228, end: 20230105

REACTIONS (2)
  - Heart rate decreased [Recovered/Resolved]
  - Inappropriate schedule of product administration [Unknown]

NARRATIVE: CASE EVENT DATE: 20221228
